FAERS Safety Report 12939742 (Version 1)
Quarter: 2016Q4

REPORT INFORMATION
  Report Type: Spontaneous
  Country: US (occurrence: US)
  Receive Date: 20161115
  Receipt Date: 20161115
  Transmission Date: 20170207
  Serious: No
  Sender: FDA-Public Use
  Company Number: US-BAYER-2016-218424

PATIENT
  Age: 82 Year
  Sex: Female
  Weight: 46.26 kg

DRUGS (1)
  1. MIRALAX [Suspect]
     Active Substance: POLYETHYLENE GLYCOL 3350
     Indication: GASTROINTESTINAL DISORDER
     Dosage: VERIES
     Dates: start: 2016

REACTIONS (2)
  - Product use issue [None]
  - Diarrhoea [None]

NARRATIVE: CASE EVENT DATE: 201609
